FAERS Safety Report 13450075 (Version 1)
Quarter: 2017Q2

REPORT INFORMATION
  Report Type: Spontaneous
  Country: US (occurrence: US)
  Receive Date: 20170417
  Receipt Date: 20170417
  Transmission Date: 20170830
  Serious: No
  Sender: FDA-Public Use
  Company Number: US-BION-20160609

PATIENT
  Age: 72 Year
  Sex: Female

DRUGS (4)
  1. ALEVE [Suspect]
     Active Substance: NAPROXEN SODIUM
     Indication: ANALGESIC THERAPY
     Dosage: 1 DF
     Route: 048
  2. WELLBUTRIN ANTI-DEPRESSANT [Concomitant]
     Indication: ANTIDEPRESSANT THERAPY
  3. METOPROLOL. [Concomitant]
     Active Substance: METOPROLOL
     Indication: HYPERTENSION
  4. UNSPECIFIED THYROID MEDICATION [Concomitant]
     Active Substance: UNSPECIFIED INGREDIENT

REACTIONS (5)
  - Wrong technique in product usage process [Unknown]
  - Anxiety [Unknown]
  - Expired product administered [Unknown]
  - Insomnia [Not Recovered/Not Resolved]
  - Incorrect drug administration duration [Unknown]
